FAERS Safety Report 7355867-4 (Version None)
Quarter: 2011Q1

REPORT INFORMATION
  Report Type: 
  Country: None (occurrence: None)
  Receive Date: 20110307
  Receipt Date: 20110223
  Transmission Date: 20110831
  Serious: Yes (Disabling)
  Sender: FDA-Public Use
  Company Number: 2011MA001706

PATIENT
  Age: 51 Year
  Sex: Male

DRUGS (1)
  1. GABAPENTIN [Suspect]
     Dosage: PUREPAC

REACTIONS (3)
  - ROAD TRAFFIC ACCIDENT [None]
  - LETHARGY [None]
  - HYPOKINESIA [None]
